FAERS Safety Report 8435934 (Version 3)
Quarter: 2015Q3

REPORT INFORMATION
  Report Type: Report from Study
  Country: FR (occurrence: FR)
  Receive Date: 20120301
  Receipt Date: 20150818
  Transmission Date: 20151125
  Serious: Yes (Other)
  Sender: FDA-Public Use
  Company Number: FR-ROCHE-1044022

PATIENT
  Sex: Female

DRUGS (3)
  1. PACLITAXEL. [Suspect]
     Active Substance: PACLITAXEL
     Indication: BREAST CANCER METASTATIC
     Dosage: 3 WEEKS-ON/1-WEEK-OFF
     Route: 042
  2. BEVACIZUMAB [Suspect]
     Active Substance: BEVACIZUMAB
     Indication: BREAST CANCER METASTATIC
     Route: 042
  3. AMG 386 [Suspect]
     Active Substance: TREBANANIB
     Indication: BREAST CANCER METASTATIC
     Dosage: 3 OR 10 MG
     Route: 042

REACTIONS (40)
  - Hypertension [Unknown]
  - Headache [Unknown]
  - Nail disorder [Unknown]
  - Asthenia [Unknown]
  - Oedema peripheral [Unknown]
  - Deep vein thrombosis [Unknown]
  - Pulmonary embolism [Unknown]
  - Rectal haemorrhage [Unknown]
  - Neuropathy peripheral [Unknown]
  - Alopecia [Unknown]
  - Constipation [Unknown]
  - Peripheral sensory neuropathy [Unknown]
  - Ascites [Unknown]
  - Vision blurred [Unknown]
  - Arthralgia [Unknown]
  - Vomiting [Unknown]
  - Cough [Unknown]
  - Oedema [Unknown]
  - Gastrointestinal perforation [Unknown]
  - Neutropenia [Unknown]
  - Nausea [Unknown]
  - Epistaxis [Unknown]
  - Fatigue [Unknown]
  - Diarrhoea [Unknown]
  - Dysgeusia [Unknown]
  - Dysphonia [Unknown]
  - Back pain [Unknown]
  - Aspartate aminotransferase increased [Unknown]
  - Hypokalaemia [Unknown]
  - Haemorrhage [Unknown]
  - Impaired healing [Unknown]
  - Proteinuria [Unknown]
  - Syncope [Unknown]
  - Pleural effusion [Unknown]
  - Embolism venous [Unknown]
  - Leukopenia [Unknown]
  - Pyrexia [Unknown]
  - Myocardial infarction [Unknown]
  - Infusion related reaction [Unknown]
  - Perirectal abscess [Unknown]
